FAERS Safety Report 4955528-2 (Version None)
Quarter: 2006Q1

REPORT INFORMATION
  Report Type: 
  Country: None (occurrence: None)
  Receive Date: 20060328
  Receipt Date: 20060310
  Transmission Date: 20060701
  Serious: Yes (Hospitalization)
  Sender: FDA-Public Use
  Company Number: PHEH2006US03282

PATIENT
  Age: 59 Year
  Sex: Female

DRUGS (14)
  1. CYTOXAN [Concomitant]
     Dosage: 6 CYCLES
     Dates: start: 19980101, end: 19990101
  2. NITRODERM [Concomitant]
     Indication: SMOKING CESSATION THERAPY
     Dates: start: 20040101
  3. PACLITAXEL [Concomitant]
  4. FASLODEX [Concomitant]
  5. ARANESP [Concomitant]
  6. ZOLOFT [Concomitant]
  7. OXYCONTIN [Concomitant]
  8. FLUOROURACIL [Concomitant]
  9. ADRIAMYCIN PFS [Concomitant]
     Indication: BREAST CANCER
  10. TAMOXIFEN CITRATE [Concomitant]
     Indication: BREAST CANCER
  11. AROMASIN [Concomitant]
     Indication: BREAST CANCER
  12. ARIMIDEX [Concomitant]
     Indication: BREAST CANCER
  13. AVASTIN [Concomitant]
     Indication: BREAST CANCER
  14. ZOMETA [Suspect]
     Indication: BREAST CANCER METASTATIC
     Dosage: 4 MG EVERY MONTH
     Dates: start: 20020101, end: 20050622

REACTIONS (3)
  - OSTEONECROSIS [None]
  - PAIN IN JAW [None]
  - STAPHYLOCOCCAL INFECTION [None]
